FAERS Safety Report 9037241 (Version 1)
Quarter: 2013Q1

REPORT INFORMATION
  Report Type: Report from Study
  Country: GB (occurrence: GB)
  Receive Date: 20130129
  Receipt Date: 20130129
  Transmission Date: 20140127
  Serious: Yes (Disabling)
  Sender: FDA-Public Use
  Company Number: GB-009507513-1301GBR004681

PATIENT
  Age: 53 Year
  Sex: Female

DRUGS (2)
  1. VORINOSTAT [Suspect]
     Indication: PLASMA CELL MYELOMA
     Dosage: 300 MG, DAY 1-7-15-21
     Route: 048
     Dates: start: 20121024, end: 20121213
  2. LENALIDOMIDE [Suspect]
     Indication: PLASMA CELL MYELOMA
     Dosage: 10 MG, DAILY FOR 21 DAYS
     Route: 048
     Dates: start: 20121024, end: 20121213

REACTIONS (2)
  - Melanocytic naevus [Recovered/Resolved]
  - Diarrhoea [Recovered/Resolved with Sequelae]
